FAERS Safety Report 23389060 (Version 8)
Quarter: 2025Q1

REPORT INFORMATION
  Report Type: Spontaneous
  Country: US (occurrence: US)
  Receive Date: 20240110
  Receipt Date: 20250304
  Transmission Date: 20250409
  Serious: No
  Sender: PFIZER
  Company Number: US-PFIZER INC-202400007790

PATIENT
  Age: 71 Year
  Sex: Female
  Weight: 53.061 kg

DRUGS (5)
  1. PREMARIN [Suspect]
     Active Substance: ESTROGENS, CONJUGATED
     Dates: start: 1985
  2. PREMARIN [Suspect]
     Active Substance: ESTROGENS, CONJUGATED
     Dates: end: 20231018
  3. PREMARIN [Suspect]
     Active Substance: ESTROGENS, CONJUGATED
     Dates: start: 20240103
  4. PREMARIN [Suspect]
     Active Substance: ESTROGENS, CONJUGATED
  5. PREMARIN [Suspect]
     Active Substance: ESTROGENS, CONJUGATED

REACTIONS (13)
  - Drug ineffective [Unknown]
  - Poor quality product administered [Unknown]
  - Product shape issue [Unknown]
  - Product colour issue [Unknown]
  - Product size issue [Unknown]
  - Product physical issue [Unknown]
  - Somnolence [Unknown]
  - Burning sensation [Unknown]
  - Pruritus [Unknown]
  - Auditory disorder [Unknown]
  - Hypertonic bladder [Unknown]
  - Behaviour disorder [Unknown]
  - Screaming [Unknown]

NARRATIVE: CASE EVENT DATE: 20240103
